FAERS Safety Report 4926618-5 (Version None)
Quarter: 2006Q1

REPORT INFORMATION
  Report Type: 
  Country: None (occurrence: None)
  Receive Date: 20060228
  Receipt Date: 20050511
  Transmission Date: 20060701
  Serious: No
  Sender: FDA-Public Use
  Company Number: US-GLAXOSMITHKLINE-A0558139A

PATIENT
  Sex: Female

DRUGS (9)
  1. LAMICTAL [Suspect]
     Indication: DRUG USE FOR UNKNOWN INDICATION
     Dosage: 100MG TWICE PER DAY
     Route: 048
  2. CLONAZEPAM [Concomitant]
  3. TOPAMAX [Concomitant]
  4. CONCERTA [Concomitant]
  5. FLEXERIL [Concomitant]
  6. AMBIEN [Concomitant]
  7. SOMA [Concomitant]
  8. ZOMIG [Concomitant]
  9. COMPAZINE [Concomitant]

REACTIONS (9)
  - EYE DISCHARGE [None]
  - FATIGUE [None]
  - HEADACHE [None]
  - LIP BLISTER [None]
  - LOCAL SWELLING [None]
  - NAUSEA [None]
  - ORAL MUCOSAL BLISTERING [None]
  - PRURITUS [None]
  - RASH [None]
